FAERS Safety Report 6411815-2 (Version None)
Quarter: 2009Q4

REPORT INFORMATION
  Report Type: 
  Country: None (occurrence: None)
  Receive Date: 20091023
  Receipt Date: 20091014
  Transmission Date: 20100525
  Serious: Yes (Hospitalization)
  Sender: FDA-Public Use
  Company Number: JP-EISAI INC.-E3810-03229-SPO-JP

PATIENT
  Age: 71 Year
  Sex: Male

DRUGS (3)
  1. PARIET (RABEPRAZOLE) [Suspect]
     Indication: HELICOBACTER INFECTION
     Route: 048
     Dates: start: 20090513, end: 20090519
  2. AMOXICILLIN [Suspect]
     Indication: HELICOBACTER INFECTION
     Route: 048
     Dates: start: 20090513, end: 20090519
  3. METRONIDAZOLE [Suspect]
     Indication: HELICOBACTER INFECTION
     Route: 048
     Dates: start: 20090513, end: 20090519

REACTIONS (1)
  - PSEUDOMEMBRANOUS COLITIS [None]
